FAERS Safety Report 13395236 (Version 1)
Quarter: 2017Q2

REPORT INFORMATION
  Report Type: Spontaneous
  Country: US (occurrence: US)
  Receive Date: 20170403
  Receipt Date: 20170403
  Transmission Date: 20170830
  Serious: Yes (Other)
  Sender: FDA-Public Use
  Company Number: US-PFIZER INC-2017134464

PATIENT
  Age: 71 Year
  Sex: Female
  Weight: 54.42 kg

DRUGS (4)
  1. LEVOTHYROXINE. [Concomitant]
     Active Substance: LEVOTHYROXINE
  2. CHANTIX [Suspect]
     Active Substance: VARENICLINE TARTRATE
     Dosage: 1 MG, 2X/DAY
     Route: 048
     Dates: start: 20160923
  3. SYNTHROID [Concomitant]
     Active Substance: LEVOTHYROXINE SODIUM
  4. CHANTIX [Suspect]
     Active Substance: VARENICLINE TARTRATE
     Indication: SMOKING CESSATION THERAPY
     Dosage: 0.5 MG, UNK
     Dates: start: 201611

REACTIONS (6)
  - Abnormal dreams [Recovered/Resolved]
  - Agitation [Unknown]
  - Suicidal ideation [Recovered/Resolved]
  - Drug prescribing error [Unknown]
  - Depression [Recovering/Resolving]
  - Hostility [Unknown]

NARRATIVE: CASE EVENT DATE: 201611
